FAERS Safety Report 6829619-5 (Version None)
Quarter: 2010Q3

REPORT INFORMATION
  Report Type: 
  Country: None (occurrence: None)
  Receive Date: 20100709
  Receipt Date: 20070417
  Transmission Date: 20110219
  Serious: No
  Sender: FDA-Public Use
  Company Number: US-PFIZER INC-2007017274

PATIENT
  Sex: Male
  Weight: 72.12 kg

DRUGS (5)
  1. CHANTIX [Suspect]
     Indication: SMOKING CESSATION THERAPY
     Dates: start: 20070224
  2. NEXIUM [Concomitant]
     Indication: GASTROOESOPHAGEAL REFLUX DISEASE
  3. NORVASC [Concomitant]
     Indication: HYPERTENSION
  4. FISH OIL [Concomitant]
  5. VITAMIN B [Concomitant]

REACTIONS (3)
  - DYSSTASIA [None]
  - NAUSEA [None]
  - SOMNOLENCE [None]
